FAERS Safety Report 22696430 (Version 2)
Quarter: 2024Q2

REPORT INFORMATION
  Report Type: Report from Study
  Country: GB (occurrence: GB)
  Receive Date: 20230712
  Receipt Date: 20240402
  Transmission Date: 20240715
  Serious: Yes (Hospitalization, Other)
  Sender: FDA-Public Use
  Company Number: None

PATIENT

DRUGS (37)
  1. EPOPROSTENOL SODIUM [Suspect]
     Active Substance: EPOPROSTENOL SODIUM
     Indication: Pulmonary arterial hypertension
     Dosage: UNK
     Route: 042
     Dates: start: 20230506, end: 20230507
  2. EPOPROSTENOL SODIUM [Suspect]
     Active Substance: EPOPROSTENOL SODIUM
     Dosage: UNK
     Route: 042
     Dates: start: 20230508, end: 20230509
  3. EPOPROSTENOL SODIUM [Suspect]
     Active Substance: EPOPROSTENOL SODIUM
     Dosage: UNK
     Route: 042
     Dates: start: 20230509, end: 20230510
  4. EPOPROSTENOL SODIUM [Suspect]
     Active Substance: EPOPROSTENOL SODIUM
     Dosage: UNK
     Route: 042
     Dates: start: 20230510, end: 20230512
  5. EPOPROSTENOL SODIUM [Suspect]
     Active Substance: EPOPROSTENOL SODIUM
     Dosage: UNK
     Route: 042
     Dates: start: 20230512, end: 20230516
  6. EPOPROSTENOL SODIUM [Suspect]
     Active Substance: EPOPROSTENOL SODIUM
     Dosage: UNK
     Route: 042
     Dates: start: 20230516, end: 20230517
  7. EPOPROSTENOL SODIUM [Suspect]
     Active Substance: EPOPROSTENOL SODIUM
     Dosage: UNK
     Route: 042
     Dates: start: 20230519
  8. EPOPROSTENOL SODIUM [Suspect]
     Active Substance: EPOPROSTENOL SODIUM
     Dosage: UNK
     Route: 042
     Dates: start: 20230518, end: 20240304
  9. EPOPROSTENOL SODIUM [Suspect]
     Active Substance: EPOPROSTENOL SODIUM
     Dosage: UNK
     Route: 042
     Dates: start: 20240304, end: 20240312
  10. MACITENTAN [Suspect]
     Active Substance: MACITENTAN
     Indication: Pulmonary arterial hypertension
     Dosage: 10 MG, QD
     Route: 048
     Dates: start: 20180105
  11. ADCIRCA [Concomitant]
     Active Substance: TADALAFIL
     Indication: Pulmonary arterial hypertension
     Dosage: UNK
     Route: 048
     Dates: start: 20171122, end: 20171127
  12. ADCIRCA [Concomitant]
     Active Substance: TADALAFIL
     Dosage: UNK
     Route: 048
     Dates: start: 20171228, end: 20230429
  13. REVATIO [Concomitant]
     Active Substance: SILDENAFIL CITRATE
     Indication: Pulmonary arterial hypertension
     Dosage: UNK
     Route: 048
     Dates: start: 2010, end: 2016
  14. UPTRAVI [Concomitant]
     Active Substance: SELEXIPAG
     Indication: Pulmonary arterial hypertension
     Dosage: 400 ?G
     Route: 048
     Dates: start: 20221107, end: 20221117
  15. UPTRAVI [Concomitant]
     Active Substance: SELEXIPAG
     Dosage: 600 ?G
     Route: 048
     Dates: start: 20221118, end: 20221208
  16. UPTRAVI [Concomitant]
     Active Substance: SELEXIPAG
     Dosage: 800 ?G
     Route: 048
     Dates: start: 20221209, end: 20221221
  17. UPTRAVI [Concomitant]
     Active Substance: SELEXIPAG
     Dosage: 400 ?G
     Route: 048
     Dates: start: 20221222, end: 20230131
  18. UPTRAVI [Concomitant]
     Active Substance: SELEXIPAG
     Dosage: 800 ?G
     Route: 048
     Dates: start: 20230201, end: 20230227
  19. UPTRAVI [Concomitant]
     Active Substance: SELEXIPAG
     Dosage: 1200 ?G
     Route: 048
     Dates: start: 20230228, end: 20230307
  20. UPTRAVI [Concomitant]
     Active Substance: SELEXIPAG
     Dosage: 1600 ?G
     Route: 048
     Dates: start: 20230308, end: 20230317
  21. UPTRAVI [Concomitant]
     Active Substance: SELEXIPAG
     Dosage: 2000 ?G
     Route: 048
     Dates: start: 20230318, end: 20230403
  22. UPTRAVI [Concomitant]
     Active Substance: SELEXIPAG
     Dosage: 2200 ?G
     Route: 048
     Dates: start: 20230404, end: 20230411
  23. UPTRAVI [Concomitant]
     Active Substance: SELEXIPAG
     Dosage: 600 ?G
     Route: 048
     Dates: start: 20230507, end: 20230508
  24. UPTRAVI [Concomitant]
     Active Substance: SELEXIPAG
     Dosage: 2400 ?G
     Route: 048
     Dates: start: 20230412, end: 20230429
  25. UPTRAVI [Concomitant]
     Active Substance: SELEXIPAG
     Dosage: 800 ?G
     Route: 048
     Dates: start: 20230506, end: 20230507
  26. UPTRAVI [Concomitant]
     Active Substance: SELEXIPAG
     Dosage: 400 ?G
     Route: 048
     Dates: start: 20230508, end: 20230508
  27. BUMETANIDE [Concomitant]
     Active Substance: BUMETANIDE
     Indication: Diuretic therapy
     Dosage: UNK
     Route: 048
     Dates: start: 20230502
  28. CYCLOSPORINE [Concomitant]
     Active Substance: CYCLOSPORINE
     Indication: Conjunctivitis
     Dosage: UNK
     Route: 048
     Dates: start: 20230510
  29. ENOXAPARIN [Concomitant]
     Active Substance: ENOXAPARIN
     Indication: Anticoagulant therapy
     Dosage: UNK
     Route: 058
     Dates: start: 20230506
  30. HYDROXYCHLOROQUINE [Concomitant]
     Active Substance: HYDROXYCHLOROQUINE
     Indication: Connective tissue disorder
     Dosage: UNK
     Route: 048
     Dates: start: 202203
  31. LEVOTHYROXINE [Concomitant]
     Active Substance: LEVOTHYROXINE\LEVOTHYROXINE SODIUM
     Indication: Hypothyroidism
     Dosage: UNK
     Route: 048
  32. LOPERAMIDE [Concomitant]
     Active Substance: LOPERAMIDE
     Indication: Diarrhoea
     Dosage: UNK
     Route: 048
  33. OMEPRAZOLE [Concomitant]
     Active Substance: OMEPRAZOLE
     Indication: Antiemetic supportive care
     Dosage: UNK
     Route: 048
  34. PREGABALIN [Concomitant]
     Active Substance: PREGABALIN
     Indication: Pain
     Dosage: UNK
     Route: 048
  35. SERTRALINE [Concomitant]
     Active Substance: SERTRALINE HYDROCHLORIDE
     Indication: Anxiety
     Dosage: UNK
     Route: 048
  36. SILDENAFIL [Concomitant]
     Active Substance: SILDENAFIL
     Indication: Raynaud^s phenomenon
     Dosage: UNK
     Route: 048
  37. APIXABAN [Concomitant]
     Active Substance: APIXABAN
     Indication: Product used for unknown indication
     Dosage: UNK
     Route: 065

REACTIONS (9)
  - Pericardial effusion [Recovering/Resolving]
  - Anaemia [Unknown]
  - Right ventricular failure [Recovered/Resolved]
  - Rectal haemorrhage [Unknown]
  - Device related infection [Recovered/Resolved]
  - COVID-19 [Unknown]
  - Abdominal distension [Unknown]
  - Weight decreased [Unknown]
  - Decreased appetite [Unknown]

NARRATIVE: CASE EVENT DATE: 20230527
